FAERS Safety Report 21269389 (Version 1)
Quarter: 2022Q3

REPORT INFORMATION
  Report Type: Spontaneous
  Country: US (occurrence: None)
  Receive Date: 20220829
  Receipt Date: 20220829
  Transmission Date: 20221027
  Serious: Yes (Hospitalization)
  Sender: FDA-Public Use
  Company Number: None

PATIENT
  Age: 78 Year
  Sex: Female
  Weight: 47.25 kg

DRUGS (13)
  1. BUSPIRONE [Suspect]
     Active Substance: BUSPIRONE HYDROCHLORIDE
     Indication: Anxiety
     Dosage: OTHER QUANTITY : 1 TABLET(S);?FREQUENCY : TWICE A DAY;?
     Route: 048
     Dates: start: 20220819, end: 20220825
  2. CARVEDILOL [Concomitant]
     Active Substance: CARVEDILOL
  3. LOSARTAN [Concomitant]
     Active Substance: LOSARTAN
  4. METFORMIN [Concomitant]
     Active Substance: METFORMIN HYDROCHLORIDE
  5. CLOPIDOGREL [Concomitant]
     Active Substance: CLOPIDOGREL BISULFATE
  6. PLAVIX [Concomitant]
     Active Substance: CLOPIDOGREL BISULFATE
  7. PEPCID [Concomitant]
     Active Substance: FAMOTIDINE
  8. SIMVASTATIN [Concomitant]
     Active Substance: SIMVASTATIN
  9. VITAMIN B12 [Concomitant]
     Active Substance: CYANOCOBALAMIN
  10. CALCIUM [Concomitant]
     Active Substance: CALCIUM
  11. IRON [Concomitant]
     Active Substance: IRON
  12. POTASSIUM [Concomitant]
     Active Substance: POTASSIUM
  13. FIBER [Concomitant]
     Active Substance: PSYLLIUM HUSK

REACTIONS (10)
  - Dizziness [None]
  - Dizziness [None]
  - Nausea [None]
  - Asthenia [None]
  - Loss of personal independence in daily activities [None]
  - Blood sodium decreased [None]
  - Blood magnesium decreased [None]
  - Blood potassium decreased [None]
  - Dehydration [None]
  - Therapy cessation [None]

NARRATIVE: CASE EVENT DATE: 20220825
